FAERS Safety Report 16007724 (Version 1)
Quarter: 2019Q1

REPORT INFORMATION
  Report Type: Spontaneous
  Country: US (occurrence: US)
  Receive Date: 20190226
  Receipt Date: 20190226
  Transmission Date: 20190418
  Serious: No
  Sender: FDA-Public Use
  Company Number: US-B.I. PHARMACEUTICALS,INC./RIDGEFIELD-2019-BI-007738

PATIENT
  Sex: Male

DRUGS (1)
  1. SPIRIVA [Suspect]
     Active Substance: TIOTROPIUM BROMIDE MONOHYDRATE
     Indication: CHRONIC OBSTRUCTIVE PULMONARY DISEASE
     Dosage: INHALE CONTENTS OF 1 CAPSULE ONCE A DAY;  STRENGTH: 18 MCG; ? ADMIN? YES ?ACTION: DOSE NOT CHANGED
     Route: 055

REACTIONS (1)
  - Hypoacusis [Not Recovered/Not Resolved]
